FAERS Safety Report 4278856-5 (Version None)
Quarter: 2004Q1

REPORT INFORMATION
  Report Type: 
  Country: None (occurrence: None)
  Receive Date: 20040122
  Receipt Date: 20040122
  Transmission Date: 20041129
  Serious: Yes (Disabling)
  Sender: FDA-Public Use
  Company Number: None

PATIENT
  Age: 64 Year
  Sex: Female
  Weight: 67.586 kg

DRUGS (1)
  1. ZOCOR [Suspect]
     Indication: BLOOD CHOLESTEROL INCREASED
     Dosage: 1 @ BEDTIME
     Dates: start: 20031021, end: 20040114

REACTIONS (4)
  - ARTHRALGIA [None]
  - BURSITIS [None]
  - DIFFICULTY IN WALKING [None]
  - MYALGIA [None]
